FAERS Safety Report 4852849-9 (Version None)
Quarter: 2005Q4

REPORT INFORMATION
  Report Type: 
  Country: None (occurrence: None)
  Receive Date: 20051214
  Receipt Date: 20051122
  Transmission Date: 20060501
  Serious: Yes (Hospitalization)
  Sender: FDA-Public Use
  Company Number: US-BOEHRINGER INGELHEIM PHARMACEUTICALS, INC.-2005-BP-20531BP

PATIENT
  Age: 66 Year
  Sex: Female
  Weight: 47.63 kg

DRUGS (5)
  1. SPIRIVA [Suspect]
     Indication: CHRONIC OBSTRUCTIVE PULMONARY DISEASE
     Route: 055
     Dates: start: 20051010, end: 20051114
  2. ALBUTEROL [Concomitant]
  3. XOPNEX [Concomitant]
     Dates: start: 20051010
  4. CARDIZEM [Concomitant]
  5. COUMADIN [Concomitant]

REACTIONS (2)
  - BRONCHIAL OBSTRUCTION [None]
  - CHRONIC OBSTRUCTIVE PULMONARY DISEASE [None]
